FAERS Safety Report 24749638 (Version 4)
Quarter: 2025Q3

REPORT INFORMATION
  Report Type: Spontaneous
  Country: EU (occurrence: EU)
  Receive Date: 20241218
  Receipt Date: 20250806
  Transmission Date: 20251021
  Serious: Yes (Other)
  Sender: NOVARTIS
  Company Number: EU-002147023-NVSC2024DE239733

PATIENT
  Age: 53 Year
  Sex: Female
  Weight: 185 kg

DRUGS (1)
  1. ILARIS [Suspect]
     Active Substance: CANAKINUMAB
     Indication: Gout
     Route: 065

REACTIONS (6)
  - Pneumonia [Unknown]
  - Bronchitis [Unknown]
  - Decreased immune responsiveness [Unknown]
  - Therapeutic product effect variable [Unknown]
  - Gastrointestinal infection [Unknown]
  - Pyrexia [Unknown]

NARRATIVE: CASE EVENT DATE: 20241001
